FAERS Safety Report 6325668-4 (Version None)
Quarter: 2009Q3

REPORT INFORMATION
  Report Type: 
  Country: None (occurrence: None)
  Receive Date: 20090824
  Receipt Date: 20090724
  Transmission Date: 20100115
  Serious: No
  Sender: FDA-Public Use
  Company Number: US-ABBOTT-09P-163-0587411-00

PATIENT
  Sex: Female
  Weight: 90.8 kg

DRUGS (16)
  1. NIASPAN [Suspect]
     Indication: HIGH DENSITY LIPOPROTEIN DECREASED
     Dates: start: 20090722
  2. NIASPAN [Suspect]
     Route: 048
     Dates: start: 20070101, end: 20090718
  3. NEURONTIN [Concomitant]
     Indication: PAIN
     Dosage: QID
     Route: 048
  4. DOXEPIN HCL [Concomitant]
     Indication: PAIN
     Dosage: HS
     Route: 048
  5. CLONAZEPAM [Concomitant]
     Indication: ANXIETY
     Dosage: TID
     Route: 048
  6. NAPROXEN [Concomitant]
     Indication: PAIN
     Dosage: DAILY
     Route: 048
  7. FLUOXETINE [Concomitant]
     Indication: DEPRESSION
     Dosage: 3 CAPS AM
     Route: 048
  8. LEVOTHYROXINE SODIUM [Concomitant]
     Indication: HYPOTHYROIDISM
     Dosage: QD
     Route: 048
  9. COREG [Concomitant]
     Indication: BLOOD PRESSURE
     Dosage: QD
     Route: 048
  10. IMDUR [Concomitant]
     Indication: BLOOD PRESSURE
     Dosage: QD
     Route: 048
  11. FAMOTIDINE [Concomitant]
     Indication: GASTROOESOPHAGEAL REFLUX DISEASE
     Route: 048
  12. SIMVASTATIN [Concomitant]
     Indication: BLOOD CHOLESTEROL
     Dosage: QD
     Route: 048
  13. ASPIRIN [Concomitant]
     Indication: DRUG USE FOR UNKNOWN INDICATION
     Dosage: QD
     Route: 048
  14. OMEPRAZOLE [Concomitant]
     Indication: DYSPEPSIA
     Route: 048
  15. NORCO [Concomitant]
     Indication: PAIN
     Route: 048
  16. NORFLEX [Concomitant]
     Indication: PAIN
     Route: 048

REACTIONS (3)
  - BLOOD GLUCOSE INCREASED [None]
  - DIABETES MELLITUS [None]
  - DRUG DOSE OMISSION [None]
